FAERS Safety Report 10476570 (Version 4)
Quarter: 2014Q4

REPORT INFORMATION
  Report Type: Spontaneous
  Country: CZ (occurrence: CZ)
  Receive Date: 20140925
  Receipt Date: 20141204
  Transmission Date: 20150528
  Serious: Yes (Hospitalization)
  Sender: FDA-Public Use
  Company Number: CZ-CELGENE-217-21880-14090108

PATIENT
  Age: 63 Year
  Sex: Female
  Weight: 93 kg

DRUGS (32)
  1. KIOVIG [Concomitant]
     Active Substance: HUMAN IMMUNOGLOBULIN G
     Dosage: .5 MILLIGRAM
     Route: 041
     Dates: start: 20131217
  2. CALCICHEW [Concomitant]
     Active Substance: CALCIUM CARBONATE
     Dosage: 500/400 MG/IU
     Route: 048
     Dates: start: 201303
  3. METOCLOPRAMIDE. [Concomitant]
     Active Substance: METOCLOPRAMIDE
     Route: 048
     Dates: start: 20131203
  4. PRENEWEL [Concomitant]
     Dosage: 4 MILLIGRAM
     Route: 048
     Dates: start: 20130820
  5. PERINDOPRIL ERBUMINE. [Concomitant]
     Active Substance: PERINDOPRIL ERBUMINE
     Dosage: 3 MILLIGRAM
     Route: 048
     Dates: start: 2005
  6. INDAPAMIDUM FARMACOM [Concomitant]
     Route: 048
     Dates: start: 20140111
  7. REVLIMID [Suspect]
     Active Substance: LENALIDOMIDE
     Indication: PLASMA CELL MYELOMA
     Dosage: 25 MILLIGRAM
     Route: 048
     Dates: start: 20130730
  8. FRAXIPARINE [Concomitant]
     Active Substance: NADROPARIN CALCIUM
     Dosage: .8 MILLILITER
     Route: 058
     Dates: start: 20140111
  9. SIOFOR [Concomitant]
     Active Substance: METFORMIN HYDROCHLORIDE
     Dosage: 850 MILLIGRAM
     Route: 048
     Dates: start: 20140401
  10. PERINDOPRIL ERBUMINE. [Concomitant]
     Active Substance: PERINDOPRIL ERBUMINE
     Route: 048
     Dates: start: 20140111
  11. CALCICHEW [Concomitant]
     Active Substance: CALCIUM CARBONATE
     Dosage: 500/400 MG/IU
     Route: 048
     Dates: start: 20140204
  12. HERPESIN [Concomitant]
     Route: 048
     Dates: start: 20130730
  13. ALPRAZOLAM. [Concomitant]
     Active Substance: ALPRAZOLAM
     Route: 048
     Dates: start: 20130911
  14. NOVALGIN [Concomitant]
     Active Substance: METAMIZOLE SODIUM
     Route: 048
     Dates: start: 20130620
  15. LEXAURIN [Concomitant]
     Active Substance: BROMAZEPAM
     Route: 048
     Dates: start: 20130823
  16. ALPRAZOLAM. [Concomitant]
     Active Substance: ALPRAZOLAM
     Dosage: 400 MILLIGRAM
     Route: 048
     Dates: start: 20130823, end: 20140910
  17. LOKREN [Concomitant]
     Active Substance: BETAXOLOL HYDROCHLORIDE
     Dosage: 10 MILLIGRAM
     Route: 048
     Dates: start: 20140111
  18. SERETIDE [Concomitant]
     Active Substance: FLUTICASONE FUROATE\SALMETEROL XINAFOATE
     Dosage: 50/500
     Route: 055
     Dates: start: 201210
  19. ANOPYRIN [Concomitant]
     Active Substance: ASPIRIN
     Route: 048
     Dates: start: 20130730
  20. SIRDALUD [Concomitant]
     Active Substance: TIZANIDINE
     Route: 065
     Dates: start: 20140729
  21. OXYCODONE HCL [Concomitant]
     Active Substance: OXYCODONE HYDROCHLORIDE
     Route: 048
     Dates: start: 20130910
  22. IBALGIN [Concomitant]
     Active Substance: IBUPROFEN
     Route: 048
     Dates: start: 200901
  23. DEGAN [Concomitant]
     Active Substance: METOCLOPRAMIDE HYDROCHLORIDE
     Route: 048
     Dates: start: 20130723
  24. ZOMETA [Concomitant]
     Active Substance: ZOLEDRONIC ACID
     Route: 041
     Dates: start: 20130827
  25. DEXAMETHASONE. [Suspect]
     Active Substance: DEXAMETHASONE
     Indication: PLASMA CELL MYELOMA
     Dosage: 40 MILLIGRAM
     Route: 048
     Dates: start: 20130730
  26. TORVACARD [Concomitant]
     Active Substance: ATORVASTATIN CALCIUM
     Dosage: 1.25 MILLIGRAM
     Route: 048
     Dates: start: 20140110
  27. DETRALEX [Concomitant]
     Active Substance: DIOSMIN\HESPERIDIN
     Dosage: 20 MILLIGRAM
     Route: 065
     Dates: start: 20140111
  28. CORSODYL [Concomitant]
     Active Substance: CHLORHEXIDINE GLUCONATE
     Route: 048
     Dates: start: 20130910
  29. BLINDED MLN9708 [Suspect]
     Active Substance: IXAZOMIB
     Indication: PLASMA CELL MYELOMA
     Dosage: .4286 MILLIGRAM
     Route: 048
     Dates: start: 20130730, end: 20140520
  30. RIVOTRIL [Concomitant]
     Active Substance: CLONAZEPAM
     Route: 048
     Dates: start: 20140401
  31. OXYCODONE HCL [Concomitant]
     Active Substance: OXYCODONE HYDROCHLORIDE
     Route: 048
     Dates: start: 20130826
  32. HELICID [Concomitant]
     Route: 048
     Dates: start: 20130730

REACTIONS (1)
  - Tendon rupture [Recovering/Resolving]

NARRATIVE: CASE EVENT DATE: 20140827
